FAERS Safety Report 15138470 (Version 1)
Quarter: 2018Q3

REPORT INFORMATION
  Report Type: Report from Study
  Country: ES (occurrence: ES)
  Receive Date: 20180713
  Receipt Date: 20180713
  Transmission Date: 20181010
  Serious: Yes (Hospitalization)
  Sender: FDA-Public Use
  Company Number: ES-TEVA-2018-ES-923961

PATIENT
  Age: 46 Year
  Sex: Female

DRUGS (3)
  1. LORAZEPAM (1864A) [Suspect]
     Active Substance: LORAZEPAM
     Indication: CELL DEATH
     Route: 048
     Dates: start: 20160711, end: 20160711
  2. NIMODIPINO (2179A) [Suspect]
     Active Substance: NIMODIPINE
     Indication: CELL DEATH
     Route: 048
     Dates: start: 20160711, end: 20160711
  3. CARVEDILOL. [Suspect]
     Active Substance: CARVEDILOL
     Indication: CELL DEATH
     Route: 048
     Dates: start: 20160711, end: 20160711

REACTIONS (3)
  - Hypotension [Recovered/Resolved]
  - Depressed level of consciousness [Recovered/Resolved]
  - Haemodynamic instability [Recovered/Resolved]

NARRATIVE: CASE EVENT DATE: 20160711
